FAERS Safety Report 17863502 (Version 8)
Quarter: 2022Q3

REPORT INFORMATION
  Report Type: Report from Study
  Country: BR (occurrence: BR)
  Receive Date: 20200604
  Receipt Date: 20220708
  Transmission Date: 20221026
  Serious: Yes (Life-Threatening, Hospitalization, Other)
  Sender: FDA-Public Use
  Company Number: BR-NOVARTISPH-NVSC2020BR148417

PATIENT
  Sex: Male
  Weight: 100 kg

DRUGS (17)
  1. XOLAIR [Suspect]
     Active Substance: OMALIZUMAB
     Indication: Asthma
     Dosage: 4 DOSAGE FORM
     Route: 065
     Dates: start: 2018, end: 201905
  2. XOLAIR [Suspect]
     Active Substance: OMALIZUMAB
     Dosage: 3 DOSAGE FORM, QMO
     Route: 058
     Dates: start: 201905
  3. XOLAIR [Suspect]
     Active Substance: OMALIZUMAB
     Dosage: 4 DOSAGE FORM
     Route: 058
     Dates: start: 202004, end: 2020
  4. XOLAIR [Suspect]
     Active Substance: OMALIZUMAB
     Dosage: 4 DOSAGE FORM (150 AMPOULES)
     Route: 058
  5. XOLAIR [Suspect]
     Active Substance: OMALIZUMAB
     Dosage: 3 DOSAGE FORM, QMO (30 DAYS) (150 AMPOULES)
     Route: 058
  6. XOLAIR [Suspect]
     Active Substance: OMALIZUMAB
     Dosage: UNK
     Route: 065
  7. AMLODIPINE [Suspect]
     Active Substance: AMLODIPINE BESYLATE
     Indication: Hypertension
     Dosage: 1 DOSAGE FORM, QD (STARTED 4 YEARS AGO)
     Route: 048
  8. BUDESONIDE [Suspect]
     Active Substance: BUDESONIDE
     Indication: Product used for unknown indication
     Dosage: UNK
     Route: 065
  9. RENOPRIL [Concomitant]
     Indication: Hypertension
     Dosage: 1 DF, BID (STARTED 4 YEARS AGO)
     Route: 048
  10. GLYBURIDE [Concomitant]
     Active Substance: GLYBURIDE
     Indication: Diabetes mellitus
     Dosage: 1 DF, BID (STARTED 5 YEARS AGO)
     Route: 048
  11. LEVOTHYROXINE [Concomitant]
     Active Substance: LEVOTHYROXINE
     Indication: Hypothyroidism
     Dosage: 1 DOSAGE FORM, QD (STARTED 5 YEARS AGO)
     Route: 048
  12. PREDNISONE [Concomitant]
     Active Substance: PREDNISONE
     Indication: Product used for unknown indication
     Dosage: UNK
     Route: 065
  13. PREDNISONE [Concomitant]
     Active Substance: PREDNISONE
     Dosage: 40 MG, QD
     Route: 065
  14. ENALAPRIL [Concomitant]
     Active Substance: ENALAPRIL
     Indication: Blood pressure increased
     Dosage: 1 DOSAGE FORM, BID (2 YEARS AGO)
     Route: 048
  15. AMITRIPTYLINE [Concomitant]
     Active Substance: AMITRIPTYLINE
     Indication: Depression
     Dosage: 1 DOSAGE FORM, BID (BEFORE USING XOLAIR (COULD NOT SPECIFY THE DATE))
     Route: 048
  16. FLUOXETINE [Concomitant]
     Active Substance: FLUOXETINE HYDROCHLORIDE
     Indication: Depression
     Dosage: 1 DOSAGE FORM, QD
     Route: 048
  17. METFORMIN [Concomitant]
     Active Substance: METFORMIN HYDROCHLORIDE
     Indication: Type 2 diabetes mellitus
     Dosage: 1 DOSAGE FORM, BID (BEFORE USING XOLAIR (COULD NOT SPECIFY THE DATE)
     Route: 048

REACTIONS (21)
  - Dyspnoea [Unknown]
  - Asthmatic crisis [Recovered/Resolved]
  - Pneumonia [Recovered/Resolved]
  - Chest pain [Recovered/Resolved]
  - Asthmatic crisis [Unknown]
  - Cataract [Recovered/Resolved]
  - Lung disorder [Unknown]
  - Gait disturbance [Not Recovered/Not Resolved]
  - Insomnia [Not Recovered/Not Resolved]
  - Liver disorder [Unknown]
  - Oxygen saturation decreased [Unknown]
  - Heart rate decreased [Unknown]
  - Fatigue [Not Recovered/Not Resolved]
  - Asthma [Not Recovered/Not Resolved]
  - Dizziness [Unknown]
  - Pain [Unknown]
  - Weight increased [Not Recovered/Not Resolved]
  - Weight decreased [Recovered/Resolved]
  - Fatigue [Recovered/Resolved]
  - Feeling abnormal [Unknown]
  - Drug ineffective [Unknown]

NARRATIVE: CASE EVENT DATE: 20180101
